FAERS Safety Report 20781690 (Version 3)
Quarter: 2022Q2

REPORT INFORMATION
  Report Type: Report from Study
  Country: CO (occurrence: CO)
  Receive Date: 20220504
  Receipt Date: 20220610
  Transmission Date: 20220721
  Serious: Yes (Death, Hospitalization, Other)
  Sender: FDA-Public Use
  Company Number: CO-ASTELLAS-2022US015927

PATIENT
  Age: 73 Year
  Sex: Female
  Weight: 50 kg

DRUGS (1)
  1. TACROLIMUS [Suspect]
     Active Substance: TACROLIMUS
     Indication: Renal transplant
     Route: 048
     Dates: start: 20200814

REACTIONS (12)
  - Cardiac arrest [Fatal]
  - Toxicity to various agents [Fatal]
  - Diarrhoea [Fatal]
  - Decreased appetite [Fatal]
  - Delirium [Fatal]
  - Hallucination [Fatal]
  - Immunosuppressant drug level increased [Fatal]
  - Neurogenic shock [Fatal]
  - Pneumonia [Fatal]
  - Blood creatinine increased [Recovering/Resolving]
  - Vomiting [Recovered/Resolved]
  - Somnolence [Unknown]

NARRATIVE: CASE EVENT DATE: 20220417
